FAERS Safety Report 10468896 (Version 2)
Quarter: 2014Q4

REPORT INFORMATION
  Report Type: Spontaneous
  Country: JP (occurrence: JP)
  Receive Date: 20140923
  Receipt Date: 20141003
  Transmission Date: 20150528
  Serious: Yes (Hospitalization)
  Sender: FDA-Public Use
  Company Number: JP-009507513-1409JPN006620

PATIENT
  Age: 64 Year
  Sex: Male

DRUGS (5)
  1. ABACAVIR SULFATE (+) LAMIVUDINE [Suspect]
     Active Substance: ABACAVIR SULFATE\LAMIVUDINE
     Indication: HIV INFECTION
     Dosage: DAILY DOSE UNKNOWN
     Route: 048
     Dates: start: 201212
  2. DOPAMINE HYDROCHLORIDE. [Concomitant]
     Active Substance: DOPAMINE HYDROCHLORIDE
     Indication: PARKINSON^S DISEASE
     Dosage: DAILY DOSE UNKNOWN
     Dates: start: 201209
  3. ISENTRESS [Suspect]
     Active Substance: RALTEGRAVIR POTASSIUM
     Indication: HIV INFECTION
     Dosage: DAILY DOSE UNKNOWN
     Route: 048
     Dates: start: 201003
  4. EMTRICITABINE (+) TENOFOVIR DISOPROXIL FUMARATE [Suspect]
     Active Substance: EMTRICITABINE\TENOFOVIR DISOPROXIL
     Indication: HIV INFECTION
     Dosage: DAILY DOSE UNKNOWN
     Route: 048
     Dates: start: 201003, end: 201212
  5. CARBIDOPA (+) LEVODOPA [Concomitant]
     Active Substance: CARBIDOPA\LEVODOPA
     Indication: PARKINSON^S DISEASE
     Dosage: DAILY DOSAGE UNKNOWN
     Route: 048
     Dates: start: 201209

REACTIONS (3)
  - Metabolic disorder [Unknown]
  - Rheumatic disorder [Unknown]
  - Multiple system atrophy [Unknown]

NARRATIVE: CASE EVENT DATE: 201401
